FAERS Safety Report 20762192 (Version 3)
Quarter: 2022Q2

REPORT INFORMATION
  Report Type: Other
  Country: UY (occurrence: None)
  Receive Date: 20220428
  Receipt Date: 20220512
  Transmission Date: 20220720
  Serious: Yes (Other)
  Sender: FDA-Public Use
  Company Number: UY-ROCHE-3083460

PATIENT
  Age: 50 Year
  Sex: Male
  Weight: 73 kg

DRUGS (7)
  1. POLATUZUMAB VEDOTIN [Suspect]
     Active Substance: POLATUZUMAB VEDOTIN
     Indication: Diffuse large B-cell lymphoma
     Dosage: FIRST CYCLE
     Route: 065
     Dates: start: 20220323
  2. POLATUZUMAB VEDOTIN [Suspect]
     Active Substance: POLATUZUMAB VEDOTIN
     Dosage: SECOND CYCLE
     Route: 065
     Dates: start: 20220413
  3. RITUXIMAB [Suspect]
     Active Substance: RITUXIMAB
     Indication: Diffuse large B-cell lymphoma
     Dosage: FORM OF ADMIN 100 MG, FIRST CYCLE
     Route: 042
     Dates: start: 20220323
  4. RITUXIMAB [Suspect]
     Active Substance: RITUXIMAB
     Dosage: SECOND CYCLE, FORM OF ADMIN 100 MG
     Route: 042
     Dates: start: 20220413
  5. RITUXIMAB [Suspect]
     Active Substance: RITUXIMAB
     Dosage: FORM OF ADMIN 500 MG, FIRST CYCLE
     Route: 042
     Dates: start: 20220323
  6. RITUXIMAB [Suspect]
     Active Substance: RITUXIMAB
     Dosage: FORM OF ADMIN 500 MG, SECOND CYCLE
     Route: 042
     Dates: start: 20220413
  7. BENDAMUSTINE [Concomitant]
     Active Substance: BENDAMUSTINE
     Indication: Diffuse large B-cell lymphoma
     Dosage: DOSE AND FREQUENCY WERE NOT REPORTED
     Route: 065
     Dates: start: 202203

REACTIONS (12)
  - Pyrexia [Not Recovered/Not Resolved]
  - Listless [Unknown]
  - Therapeutic response decreased [Unknown]
  - Pancytopenia [Not Recovered/Not Resolved]
  - Blood lactate dehydrogenase increased [Unknown]
  - Abdominal neoplasm [Unknown]
  - Tumour pain [Unknown]
  - Leukopenia [Unknown]
  - Neutropenia [Unknown]
  - Anaemia [Unknown]
  - Thrombocytopenia [Unknown]
  - Disease progression [Unknown]

NARRATIVE: CASE EVENT DATE: 20220418
